FAERS Safety Report 4978506-6 (Version None)
Quarter: 2006Q2

REPORT INFORMATION
  Report Type: 
  Country: None (occurrence: None)
  Receive Date: 20060420
  Receipt Date: 20060410
  Transmission Date: 20061013
  Serious: Yes (Disabling)
  Sender: FDA-Public Use
  Company Number: EG-ABBOTT-06P-048-0330356-00

PATIENT
  Age: 19 Year
  Sex: Female

DRUGS (3)
  1. DEPAKENE [Suspect]
     Indication: CONVULSION
     Route: 048
  2. DEPAKENE [Suspect]
  3. CLONAZEPAM [Concomitant]
     Indication: CONVULSION
     Route: 048

REACTIONS (4)
  - COMA [None]
  - DEPRESSED LEVEL OF CONSCIOUSNESS [None]
  - DRUG INEFFECTIVE [None]
  - MYOCLONUS [None]
